FAERS Safety Report 6230743-9 (Version None)
Quarter: 2009Q2

REPORT INFORMATION
  Report Type: 
  Country: None (occurrence: None)
  Receive Date: 20090612
  Receipt Date: 20090612
  Transmission Date: 20091009
  Serious: No
  Sender: FDA-Public Use
  Company Number: None

PATIENT
  Sex: Male

DRUGS (2)
  1. AMIFOSTINE 500MG SEN PHARMACEUTICALS [Suspect]
     Indication: DRY MOUTH
     Dosage: 500MG  M-F SQ, AFTER REINITIATION
     Route: 058
     Dates: start: 20090609
  2. AMIFOSTINE 500MG SEN PHARMACEUTICALS [Suspect]
     Indication: HEAD AND NECK CANCER
     Dosage: 500MG  M-F SQ, AFTER REINITIATION
     Route: 058
     Dates: start: 20090609

REACTIONS (2)
  - PRURITUS [None]
  - RASH MACULAR [None]
